FAERS Safety Report 7636395-5 (Version None)
Quarter: 2011Q3

REPORT INFORMATION
  Report Type: 
  Country: None (occurrence: None)
  Receive Date: 20110719
  Receipt Date: 20110711
  Transmission Date: 20111222
  Serious: Yes (Other)
  Sender: FDA-Public Use
  Company Number: 2011SP021077

PATIENT
  Sex: Female

DRUGS (4)
  1. BOCEPREVIR (SCH-503034) [Suspect]
     Indication: HEPATITIS C
     Dosage: 800 MG, TID;
     Dates: start: 20110425
  2. PEG-INTRON [Suspect]
     Indication: PRODUCT USED FOR UNKNOWN INDICATION
     Dosage: 100 MCG, QW, SC
     Route: 058
  3. OXAZEPAM [Concomitant]
  4. REBETOL [Suspect]
     Indication: PRODUCT USED FOR UNKNOWN INDICATION
     Dosage: 400 MG, QD, 600 MG, QD;

REACTIONS (4)
  - FATIGUE [None]
  - MEDICATION ERROR [None]
  - AGGRESSION [None]
  - MOOD SWINGS [None]
